FAERS Safety Report 16646999 (Version 2)
Quarter: 2019Q3

REPORT INFORMATION
  Report Type: Report from Study
  Country: JP (occurrence: JP)
  Receive Date: 20190730
  Receipt Date: 20190731
  Transmission Date: 20191004
  Serious: Yes (Other)
  Sender: FDA-Public Use
  Company Number: JP-TEVA-2019-JP-1084003

PATIENT

DRUGS (5)
  1. PIRARUBICIN [Suspect]
     Active Substance: PIRARUBICIN
     Indication: SOFT TISSUE SARCOMA
     Dosage: ON DAYS 8 AND 22
     Route: 013
  2. ETOPOSIDE. [Suspect]
     Active Substance: ETOPOSIDE
     Indication: SOFT TISSUE SARCOMA
     Dosage: SCHEDULED FOR 3 DAYS
     Route: 042
  3. PIRARUBICIN [Suspect]
     Active Substance: PIRARUBICIN
     Indication: SOFT TISSUE SARCOMA
     Dosage: SCHEDULED FOR 2 DAYS
     Route: 042
  4. CISPLATIN. [Suspect]
     Active Substance: CISPLATIN
     Indication: SOFT TISSUE SARCOMA
     Dosage: ON DAYS 1, 15 AND 29
     Route: 013
  5. IFOSFAMIDE. [Suspect]
     Active Substance: IFOSFAMIDE
     Indication: SOFT TISSUE SARCOMA
     Dosage: 2 G/M2 SCHEDULED FOR 5 DAYS
     Route: 042

REACTIONS (1)
  - Acute kidney injury [Unknown]
